FAERS Safety Report 5967728-3 (Version None)
Quarter: 2008Q4

REPORT INFORMATION
  Report Type: 
  Country: None (occurrence: None)
  Receive Date: 20081126
  Receipt Date: 20081117
  Transmission Date: 20090506
  Serious: Yes (Hospitalization)
  Sender: FDA-Public Use
  Company Number: US-BAYER-200834805NA

PATIENT
  Age: 43 Year
  Sex: Male

DRUGS (9)
  1. BETASERON [Suspect]
     Indication: MULTIPLE SCLEROSIS
     Dates: start: 20051101, end: 20080801
  2. TIZANIDINE HCL [Concomitant]
  3. METFORMIN HCL [Concomitant]
  4. TRILEPTAL [Concomitant]
  5. TRAMADOL HCL [Concomitant]
  6. FLOMAX [Concomitant]
  7. OXYBUTIN [Concomitant]
  8. CLONAZEPAM [Concomitant]
  9. CYMBALTA [Concomitant]

REACTIONS (5)
  - EXOSTOSIS [None]
  - FALL [None]
  - MULTIPLE SCLEROSIS RELAPSE [None]
  - OSTEOMYELITIS [None]
  - TYPE 2 DIABETES MELLITUS [None]
